FAERS Safety Report 12955987 (Version 6)
Quarter: 2017Q3

REPORT INFORMATION
  Report Type: Spontaneous
  Country: KR (occurrence: KR)
  Receive Date: 20161118
  Receipt Date: 20170802
  Transmission Date: 20171127
  Serious: Yes (Other)
  Sender: FDA-Public Use
  Company Number: KR-009507513-1610KOR000655

PATIENT
  Age: 63 Year
  Sex: Female
  Weight: 42.8 kg

DRUGS (67)
  1. EMEND (FOSAPREPITANT DIMEGLUMINE) [Suspect]
     Active Substance: FOSAPREPITANT DIMEGLUMINE
     Dosage: 150 MG, ONCE
     Route: 042
     Dates: start: 20161011, end: 20161011
  2. FLUOROURACIL. [Concomitant]
     Active Substance: FLUOROURACIL
     Dosage: STRENGHT:(500MG/10ML),  DOSE: 2630 MG (CYCLE 8), QD
     Route: 042
     Dates: start: 20160906, end: 20160908
  3. FLUOROURACIL. [Concomitant]
     Active Substance: FLUOROURACIL
     Dosage: STRENGHT:(500MG/10ML), DOSE: 440 MG (CYCLE 9), QD
     Route: 042
     Dates: start: 20160926, end: 20160926
  4. FLUOROURACIL. [Concomitant]
     Active Substance: FLUOROURACIL
     Dosage: STRENGHT:(500MG/10ML), DOSE: 2630 MG (CYCLE 13), QD
     Route: 042
     Dates: start: 20161205, end: 20161207
  5. DEXAMETHASONE. [Concomitant]
     Active Substance: DEXAMETHASONE
     Dosage: 4 MG, BID
     Route: 048
     Dates: start: 20160927, end: 20160929
  6. ELOXATIN [Concomitant]
     Active Substance: OXALIPLATIN
     Dosage: 90 MG (CYCLE 11), ONCE
     Route: 042
     Dates: start: 20161101, end: 20161101
  7. FLUOROURACIL. [Concomitant]
     Active Substance: FLUOROURACIL
     Dosage: STRENGHT:(500MG/10ML), DOSE: 440 MG (CYCLE 12), QD
     Route: 042
     Dates: start: 20161114, end: 20161114
  8. DEXAMETHASONE SODIUM PHOSPHATE. [Concomitant]
     Active Substance: DEXAMETHASONE SODIUM PHOSPHATE
     Dosage: 10 MG, QD
     Route: 042
     Dates: start: 20161011, end: 20161011
  9. DEXAMETHASONE SODIUM PHOSPHATE. [Concomitant]
     Active Substance: DEXAMETHASONE SODIUM PHOSPHATE
     Dosage: 10 MG, QD
     Route: 042
     Dates: start: 20161101, end: 20161101
  10. ALOXI [Concomitant]
     Active Substance: PALONOSETRON HYDROCHLORIDE
     Dosage: 0.25 MG, QD
     Route: 042
     Dates: start: 20161101, end: 20161101
  11. ALOXI [Concomitant]
     Active Substance: PALONOSETRON HYDROCHLORIDE
     Dosage: 0.25 MG, QD
     Route: 042
     Dates: start: 20161219, end: 20161219
  12. PENIRAMIN [Concomitant]
     Indication: DRUG TOXICITY PROPHYLAXIS
     Dosage: 4 MG, QD
     Route: 042
     Dates: start: 20160906, end: 20160906
  13. ZOVIRAX [Concomitant]
     Active Substance: ACYCLOVIR
     Indication: HERPES VIRUS INFECTION
     Dosage: 200 MG (1 TABLET), TID
     Route: 048
     Dates: start: 20160725
  14. EMEND (FOSAPREPITANT DIMEGLUMINE) [Suspect]
     Active Substance: FOSAPREPITANT DIMEGLUMINE
     Dosage: 150 MG, ONCE
     Route: 042
     Dates: start: 20161205, end: 20161205
  15. AVASTIN [Concomitant]
     Active Substance: BEVACIZUMAB
     Indication: COLON CANCER
     Dosage: 230 MG (CYCLE 8), ONCE
     Route: 042
     Dates: start: 20160906, end: 20160906
  16. ELOXATIN [Concomitant]
     Active Substance: OXALIPLATIN
     Indication: COLON CANCER
     Dosage: 90 MG (CYCLE 8), ONCE
     Route: 042
     Dates: start: 20160906, end: 20160906
  17. FLUOROURACIL. [Concomitant]
     Active Substance: FLUOROURACIL
     Dosage: STRENGHT:(500MG/10ML), DOSE: 440 MG (CYCLE 10), QD
     Route: 042
     Dates: start: 20161011, end: 20161011
  18. DEXAMETHASONE SODIUM PHOSPHATE. [Concomitant]
     Active Substance: DEXAMETHASONE SODIUM PHOSPHATE
     Indication: PROPHYLAXIS OF NAUSEA AND VOMITING
     Dosage: 10 MG, QD
     Route: 042
     Dates: start: 20160906, end: 20160906
  19. DEXAMETHASONE. [Concomitant]
     Active Substance: DEXAMETHASONE
     Dosage: 4 MG, BID
     Route: 048
     Dates: start: 20161206, end: 20161208
  20. DEXAMETHASONE. [Concomitant]
     Active Substance: DEXAMETHASONE
     Dosage: 4 MG, BID
     Route: 048
     Dates: start: 20161206, end: 20161208
  21. ALOXI [Concomitant]
     Active Substance: PALONOSETRON HYDROCHLORIDE
     Dosage: 0.25 MG, QD
     Route: 042
     Dates: start: 20161205, end: 20161205
  22. EMEND (FOSAPREPITANT DIMEGLUMINE) [Suspect]
     Active Substance: FOSAPREPITANT DIMEGLUMINE
     Dosage: 150 MG, ONCE
     Route: 042
     Dates: start: 20160926, end: 20160926
  23. AVASTIN [Concomitant]
     Active Substance: BEVACIZUMAB
     Dosage: 230 MG (CYCLE 10), ONCE
     Route: 042
     Dates: start: 20161011, end: 20161011
  24. ELOXATIN [Concomitant]
     Active Substance: OXALIPLATIN
     Dosage: 90 MG (CYCLE 9), ONCE
     Route: 042
     Dates: start: 20160926, end: 20160926
  25. ELOXATIN [Concomitant]
     Active Substance: OXALIPLATIN
     Dosage: 90 MG (CYCLE 10), ONCE
     Route: 042
     Dates: start: 20161011, end: 20161011
  26. FLUOROURACIL. [Concomitant]
     Active Substance: FLUOROURACIL
     Dosage: STRENGHT:(500MG/10ML), DOSE: 2630 MG (CYCLE 10), QD
     Route: 042
     Dates: start: 20161011, end: 20161013
  27. FLUOROURACIL. [Concomitant]
     Active Substance: FLUOROURACIL
     Dosage: STRENGHT:(500MG/10ML), DOSE: 2630 MG (CYCLE 12), QD
     Route: 042
     Dates: start: 20161114, end: 20161116
  28. DEXAMETHASONE. [Concomitant]
     Active Substance: DEXAMETHASONE
     Dosage: 4 MG, BID
     Route: 048
     Dates: start: 20161115, end: 20161117
  29. ADIPAM [Concomitant]
     Indication: PRURITUS
     Dosage: 10 MG (1 TABLET), TID
     Route: 048
     Dates: start: 20160906, end: 20160906
  30. EMEND (FOSAPREPITANT DIMEGLUMINE) [Suspect]
     Active Substance: FOSAPREPITANT DIMEGLUMINE
     Dosage: 150 MG, ONCE
     Route: 042
     Dates: start: 20161101, end: 20161101
  31. AVASTIN [Concomitant]
     Active Substance: BEVACIZUMAB
     Dosage: 230 MG (CYCLE 13), ONCE
     Route: 042
     Dates: start: 20161205, end: 20161205
  32. FLUOROURACIL. [Concomitant]
     Active Substance: FLUOROURACIL
     Dosage: STRENGHT:(500MG/10ML), DOSE: 440 MG (CYCLE 14), QD
     Route: 042
     Dates: start: 20161219, end: 20161219
  33. PENIRAMIN [Concomitant]
     Dosage: 4 MG, QD
     Route: 042
     Dates: start: 20160926, end: 20160926
  34. FAMOTIDINE. [Concomitant]
     Active Substance: FAMOTIDINE
     Dosage: 20 MG (AMP), QD
     Route: 042
     Dates: start: 20160926, end: 20160926
  35. EMEND (FOSAPREPITANT DIMEGLUMINE) [Suspect]
     Active Substance: FOSAPREPITANT DIMEGLUMINE
     Indication: PROPHYLAXIS OF NAUSEA AND VOMITING
     Dosage: 150 MG, ONCE
     Route: 042
     Dates: start: 20160906, end: 20160906
  36. EMEND (FOSAPREPITANT DIMEGLUMINE) [Suspect]
     Active Substance: FOSAPREPITANT DIMEGLUMINE
     Dosage: 150 MG, ONCE
     Route: 042
     Dates: start: 20161114, end: 20161114
  37. AVASTIN [Concomitant]
     Active Substance: BEVACIZUMAB
     Dosage: 230 MG (CYCLE 9), ONCE
     Route: 042
     Dates: start: 20160926, end: 20160926
  38. AVASTIN [Concomitant]
     Active Substance: BEVACIZUMAB
     Dosage: 230 MG (CYCLE 11), ONCE
     Route: 042
     Dates: start: 20161101, end: 20161101
  39. AVASTIN [Concomitant]
     Active Substance: BEVACIZUMAB
     Dosage: 230 MG (CYCLE 12), ONCE
     Route: 042
     Dates: start: 20161114, end: 20161114
  40. FLUOROURACIL. [Concomitant]
     Active Substance: FLUOROURACIL
     Dosage: STRENGHT:(500MG/10ML), DOSE: 2630 MG (CYCLE 9), QD
     Route: 042
     Dates: start: 20160926, end: 20160928
  41. FLUOROURACIL. [Concomitant]
     Active Substance: FLUOROURACIL
     Dosage: STRENGHT:(500MG/10ML), DOSE: 2630 MG (CYCLE 14), QD
     Route: 042
     Dates: start: 20161219, end: 20161221
  42. DEXAMETHASONE. [Concomitant]
     Active Substance: DEXAMETHASONE
     Indication: PROPHYLAXIS OF NAUSEA AND VOMITING
     Dosage: 4 MG, BID
     Route: 048
     Dates: start: 20160907, end: 20160909
  43. ALOXI [Concomitant]
     Active Substance: PALONOSETRON HYDROCHLORIDE
     Indication: PROPHYLAXIS OF NAUSEA AND VOMITING
     Dosage: 0.25 MG, QD
     Route: 042
     Dates: start: 20160906, end: 20160906
  44. ALOXI [Concomitant]
     Active Substance: PALONOSETRON HYDROCHLORIDE
     Dosage: 0.25 MG, QD
     Route: 042
     Dates: start: 20161114, end: 20161114
  45. CIPROURO [Concomitant]
     Indication: LIVER ABSCESS
     Dosage: 500 MG (1 TABLET), BID
     Route: 048
     Dates: start: 20160906, end: 20160919
  46. PENIRAMIN [Concomitant]
     Dosage: 4 MG, QD
     Route: 042
     Dates: start: 20161101, end: 20161101
  47. FAMOTIDINE. [Concomitant]
     Active Substance: FAMOTIDINE
     Dosage: 20 MG (AMP), QD
     Route: 042
     Dates: start: 20161101, end: 20161101
  48. DICAMAX [Concomitant]
     Indication: OSTEOPOROSIS
     Dosage: ONE 1000 MG TABLET, QD
     Route: 048
     Dates: start: 20160608
  49. AVASTIN [Concomitant]
     Active Substance: BEVACIZUMAB
     Dosage: 230 MG (CYCLE 14), ONCE
     Route: 042
     Dates: start: 20161219, end: 20161219
  50. FLUOROURACIL. [Concomitant]
     Active Substance: FLUOROURACIL
     Dosage: STRENGHT:(500MG/10ML), DOSE: 2630 MG (CYCLE 11), QD
     Route: 042
     Dates: start: 20161101, end: 20161103
  51. DEXAMETHASONE SODIUM PHOSPHATE. [Concomitant]
     Active Substance: DEXAMETHASONE SODIUM PHOSPHATE
     Dosage: 10 MG, QD
     Route: 042
     Dates: start: 20161114, end: 20161114
  52. DEXAMETHASONE SODIUM PHOSPHATE. [Concomitant]
     Active Substance: DEXAMETHASONE SODIUM PHOSPHATE
     Dosage: 10 MG, QD
     Route: 042
     Dates: start: 20161205, end: 20161205
  53. DEXAMETHASONE SODIUM PHOSPHATE. [Concomitant]
     Active Substance: DEXAMETHASONE SODIUM PHOSPHATE
     Dosage: 10 MG, QD
     Route: 042
     Dates: start: 20161219, end: 20161219
  54. DEXAMETHASONE. [Concomitant]
     Active Substance: DEXAMETHASONE
     Dosage: 4 MG, BID
     Route: 048
     Dates: start: 20161012, end: 20161014
  55. ALOXI [Concomitant]
     Active Substance: PALONOSETRON HYDROCHLORIDE
     Dosage: 0.25 MG, QD
     Route: 042
     Dates: start: 20160926, end: 20160926
  56. XYZAL [Concomitant]
     Active Substance: LEVOCETIRIZINE DIHYDROCHLORIDE
     Indication: PRURITUS
     Dosage: 5 MG (1 TABLET), QD
     Route: 048
     Dates: start: 20160906, end: 20160906
  57. NEXIUM [Concomitant]
     Active Substance: ESOMEPRAZOLE MAGNESIUM
     Indication: PROPHYLAXIS
     Dosage: 20 MG (1 TABLET), ONCE
     Route: 048
     Dates: start: 20160906
  58. PENIRAMIN [Concomitant]
     Dosage: 4 MG, QD
     Route: 042
     Dates: start: 20161114, end: 20161114
  59. FAMOTIDINE. [Concomitant]
     Active Substance: FAMOTIDINE
     Dosage: 20 MG (AMP), QD
     Route: 042
     Dates: start: 20161114, end: 20161114
  60. ELOXATIN [Concomitant]
     Active Substance: OXALIPLATIN
     Dosage: 90 MG (CYCLE 12), ONCE
     Route: 042
     Dates: start: 20161114, end: 20161114
  61. FLUOROURACIL. [Concomitant]
     Active Substance: FLUOROURACIL
     Indication: COLON CANCER
     Dosage: STRENGHT:(500MG/10ML), 440 MG (CYCLE 8), QD
     Route: 042
     Dates: start: 20160906, end: 20160906
  62. FLUOROURACIL. [Concomitant]
     Active Substance: FLUOROURACIL
     Dosage: STRENGHT:(500MG/10ML), DOSE: 440 MG (CYCLE 11), QD
     Route: 042
     Dates: start: 20161101, end: 20161101
  63. FLUOROURACIL. [Concomitant]
     Active Substance: FLUOROURACIL
     Dosage: STRENGHT:(500MG/10ML), DOSE: 440 MG (CYCLE 13), QD
     Route: 042
     Dates: start: 20161205, end: 20161205
  64. DEXAMETHASONE SODIUM PHOSPHATE. [Concomitant]
     Active Substance: DEXAMETHASONE SODIUM PHOSPHATE
     Dosage: 10 MG, QD
     Route: 042
     Dates: start: 20160926, end: 20160926
  65. DEXAMETHASONE. [Concomitant]
     Active Substance: DEXAMETHASONE
     Dosage: 4 MG, BID
     Route: 048
     Dates: start: 20161102, end: 20161104
  66. ALOXI [Concomitant]
     Active Substance: PALONOSETRON HYDROCHLORIDE
     Dosage: 0.25 MG, QD
     Route: 042
     Dates: start: 20161011, end: 20161011
  67. FAMOTIDINE. [Concomitant]
     Active Substance: FAMOTIDINE
     Indication: PROPHYLAXIS
     Dosage: 20 MG (AMP), QD
     Route: 042
     Dates: start: 20160906, end: 20160906

REACTIONS (11)
  - Urinary tract infection [Recovered/Resolved]
  - Hypoaesthesia [Not Recovered/Not Resolved]
  - Blood albumin decreased [Recovered/Resolved]
  - Pyrexia [Recovered/Resolved]
  - Myalgia [Recovered/Resolved]
  - Hepatic enzyme increased [Recovered/Resolved]
  - Insomnia [Recovered/Resolved]
  - Vomiting [Recovered/Resolved]
  - Oesophageal motility disorder [Recovered/Resolved]
  - Constipation [Recovered/Resolved]
  - Anal ulcer [Recovered/Resolved]

NARRATIVE: CASE EVENT DATE: 20160908
